FAERS Safety Report 9269828 (Version 1)
Quarter: 2013Q2

REPORT INFORMATION
  Report Type: Spontaneous
  Country: US (occurrence: US)
  Receive Date: 20130503
  Receipt Date: 20130503
  Transmission Date: 20140414
  Serious: Yes (Hospitalization)
  Sender: FDA-Public Use
  Company Number: US-JNJFOC-20130411997

PATIENT
  Age: 62 Year
  Sex: Male
  Weight: 108.86 kg

DRUGS (14)
  1. SANDOZ FENTANYL TRANSDERMAL SYSTEM [Suspect]
     Indication: INJURY
     Route: 062
     Dates: start: 2011
  2. OXYCODONE [Concomitant]
     Indication: PAIN
     Route: 048
     Dates: start: 2011
  3. FLEXERIL [Concomitant]
     Indication: MUSCLE SPASMS
     Route: 065
     Dates: start: 2011
  4. CARVEDILOL [Concomitant]
     Indication: CARDIAC DISORDER
     Route: 065
     Dates: start: 2009
  5. RANEXA [Concomitant]
     Indication: CARDIAC DISORDER
     Route: 065
     Dates: start: 2009
  6. PRADAXA [Concomitant]
     Indication: ANTICOAGULANT THERAPY
     Route: 065
     Dates: start: 2011
  7. METFORMIN [Concomitant]
     Indication: DIABETES MELLITUS
     Route: 065
  8. ROBAXIN [Concomitant]
     Indication: CARDIAC DISORDER
     Route: 065
     Dates: start: 2010
  9. DIOVAN [Concomitant]
     Indication: BLOOD PRESSURE
     Route: 065
     Dates: start: 2008
  10. PHENERGAN [Concomitant]
     Indication: NAUSEA
     Route: 065
  11. PRAVACHOL [Concomitant]
     Indication: BLOOD CHOLESTEROL
     Route: 065
     Dates: start: 2011
  12. LISINOPRIL [Concomitant]
     Indication: BLOOD PRESSURE
     Route: 065
     Dates: start: 2003
  13. BUMEX [Concomitant]
     Indication: CARDIAC FAILURE CONGESTIVE
     Route: 065
     Dates: start: 2010
  14. VOLTAREN [Concomitant]
     Indication: ANTIINFLAMMATORY THERAPY
     Route: 065
     Dates: start: 2009

REACTIONS (5)
  - Myocardial infarction [Unknown]
  - Pneumonia [Unknown]
  - Drug ineffective [Not Recovered/Not Resolved]
  - Product quality issue [Not Recovered/Not Resolved]
  - Underdose [Not Recovered/Not Resolved]
